FAERS Safety Report 5091727-X (Version None)
Quarter: 2006Q3

REPORT INFORMATION
  Report Type: 
  Country: None (occurrence: None)
  Receive Date: 20060824
  Receipt Date: 20060814
  Transmission Date: 20061208
  Serious: Yes (Hospitalization)
  Sender: FDA-Public Use
  Company Number: 2006EU002162

PATIENT
  Age: 50 Year
  Sex: Male
  Weight: 93 kg

DRUGS (1)
  1. FK506(TACROLIMUS CAPSULES) [Suspect]
     Indication: RENAL TRANSPLANT
     Dosage: 1.5 MG, D, ORAL
     Route: 048
     Dates: start: 20050713

REACTIONS (3)
  - BENIGN INTRACRANIAL HYPERTENSION [None]
  - BLOOD FOLATE DECREASED [None]
  - VITAMIN B12 DECREASED [None]
